FAERS Safety Report 8048892-1 (Version None)
Quarter: 2012Q1

REPORT INFORMATION
  Report Type: 
  Country: None (occurrence: None)
  Receive Date: 20120117
  Receipt Date: 20120105
  Transmission Date: 20120608
  Serious: Yes (Hospitalization, Other)
  Sender: FDA-Public Use
  Company Number: US-ELI_LILLY_AND_COMPANY-US201101002792

PATIENT
  Sex: Female

DRUGS (12)
  1. FORTEO [Suspect]
     Indication: OSTEOPOROSIS
     Dosage: 20 UG, QD
     Route: 065
     Dates: start: 20101201, end: 20110131
  2. FORTEO [Suspect]
     Dosage: 20 UG, QD
     Route: 065
  3. NOVOLOG [Concomitant]
     Dosage: 3 UL, 3/D
  4. VICODIN [Concomitant]
  5. NOVOLOG [Concomitant]
     Dosage: 6 U, 3/D
  6. LACTULOSE [Concomitant]
  7. PREVACID [Concomitant]
  8. POTASSIUM CHLORIDE [Concomitant]
  9. LANTUS [Concomitant]
     Dosage: 10 UL, UNK
  10. ASPIRIN [Concomitant]
  11. FORTEO [Suspect]
     Dosage: 20 UG, QD
     Route: 065
     Dates: start: 20110206
  12. VITAMIN D [Concomitant]

REACTIONS (13)
  - RED BLOOD CELL COUNT DECREASED [None]
  - LOCALISED OEDEMA [None]
  - PULMONARY HYPERTENSION [None]
  - OEDEMA PERIPHERAL [None]
  - LIVER DISORDER [None]
  - BLOOD GLUCOSE INCREASED [None]
  - FEELING HOT [None]
  - HERPES ZOSTER [None]
  - DIABETES MELLITUS [None]
  - GENERALISED OEDEMA [None]
  - TREMOR [None]
  - PAIN [None]
  - SLEEP DISORDER DUE TO A GENERAL MEDICAL CONDITION [None]
